FAERS Safety Report 14525231 (Version 3)
Quarter: 2018Q2

REPORT INFORMATION
  Report Type: Spontaneous
  Country: AU (occurrence: AU)
  Receive Date: 20180213
  Receipt Date: 20180514
  Transmission Date: 20180711
  Serious: Yes (Other)
  Sender: FDA-Public Use
  Company Number: AU-VIIV HEALTHCARE LIMITED-AU2018GSK022577

PATIENT
  Age: 59 Year
  Sex: Male

DRUGS (3)
  1. LOPINAVIR AND RITONAVIR [Concomitant]
     Active Substance: LOPINAVIR\RITONAVIR
     Indication: PRODUCT USED FOR UNKNOWN INDICATION
     Dosage: UNK
  2. TRIUMEQ [Suspect]
     Active Substance: ABACAVIR SULFATE\DOLUTEGRAVIR SODIUM\LAMIVUDINE
     Indication: HIV INFECTION
     Dosage: UNK
  3. KIVEXA [Suspect]
     Active Substance: ABACAVIR SULFATE\LAMIVUDINE
     Indication: HIV INFECTION
     Dosage: UNK

REACTIONS (8)
  - Troponin increased [Recovering/Resolving]
  - Ventricular hypokinesia [Unknown]
  - Myocarditis [Recovering/Resolving]
  - Cardiac failure [Recovering/Resolving]
  - Syncope [Unknown]
  - Ventricular tachycardia [Recovering/Resolving]
  - Presyncope [Unknown]
  - Dyspnoea [Recovering/Resolving]
